FAERS Safety Report 8491011-8 (Version None)
Quarter: 2012Q3

REPORT INFORMATION
  Report Type: 
  Country: None (occurrence: None)
  Receive Date: 20120706
  Receipt Date: 20120630
  Transmission Date: 20120928
  Serious: Yes (Death)
  Sender: FDA-Public Use
  Company Number: US-CELGENEUS-163-21880-12070162

PATIENT
  Sex: Male
  Weight: 89.7 kg

DRUGS (2)
  1. CETUXIMAB [Suspect]
     Indication: HEAD AND NECK CANCER METASTATIC
     Dosage: 1110 MILLIGRAM
     Route: 065
     Dates: start: 20110104, end: 20110101
  2. REVLIMID [Suspect]
     Indication: HEAD AND NECK CANCER METASTATIC
     Dosage: 25 MILLIGRAM
     Route: 048

REACTIONS (1)
  - DEATH [None]
